FAERS Safety Report 5688077-7 (Version None)
Quarter: 2008Q1

REPORT INFORMATION
  Report Type: 
  Country: None (occurrence: None)
  Receive Date: 20080327
  Receipt Date: 20080305
  Transmission Date: 20080703
  Serious: Yes (Hospitalization)
  Sender: FDA-Public Use
  Company Number: 2008-0028-EUR

PATIENT
  Age: 41 Year
  Sex: Female

DRUGS (4)
  1. TOPEX TOPICAL ANESTHETIC GEL (BENZOCAINE) (BENZOCAINE) [Suspect]
     Indication: TOOTH EXTRACTION
     Dates: start: 20080225, end: 20080225
  2. TOPEX TOPICAL ANESTHETIC GEL (BENZOCAINE) (BENZOCAINE) [Suspect]
  3. TOPEX TOPICAL ANESTHETIC GEL (BENZOCAINE) [Suspect]
  4. LIDOCAINE [Concomitant]

REACTIONS (2)
  - INJECTION SITE INFECTION [None]
  - POST PROCEDURAL INFECTION [None]
